FAERS Safety Report 17858110 (Version 2)
Quarter: 2020Q2

REPORT INFORMATION
  Report Type: Report from Study
  Country: None (occurrence: US)
  Receive Date: 20200604
  Receipt Date: 20200623
  Transmission Date: 20200714
  Serious: Yes (Hospitalization, Other)
  Sender: FDA-Public Use
  Company Number: US-ABBVIE-20P-163-3428382-00

PATIENT
  Sex: Female

DRUGS (2)
  1. BENADRYL [Suspect]
     Active Substance: DIPHENHYDRAMINE HYDROCHLORIDE
     Indication: PRODUCT USED FOR UNKNOWN INDICATION
     Route: 065
  2. IMBRUVICA [Suspect]
     Active Substance: IBRUTINIB
     Indication: CHRONIC LYMPHOCYTIC LEUKAEMIA
     Route: 048
     Dates: start: 20200307

REACTIONS (8)
  - Papilloma viral infection [Unknown]
  - Pneumonia [Unknown]
  - White blood cell count decreased [Unknown]
  - Nausea [Unknown]
  - Hypersensitivity [Unknown]
  - Alopecia [Unknown]
  - Surgery [Unknown]
  - Vomiting [Unknown]
